FAERS Safety Report 6519276-X (Version None)
Quarter: 2009Q4

REPORT INFORMATION
  Report Type: 
  Country: None (occurrence: None)
  Receive Date: 20091228
  Receipt Date: 20091214
  Transmission Date: 20100525
  Serious: Yes (Hospitalization)
  Sender: FDA-Public Use
  Company Number: FR-CELGENEUS-056-C5013-09121108

PATIENT
  Sex: Male
  Weight: 70 kg

DRUGS (4)
  1. CC-5013 [Suspect]
     Indication: MULTIPLE MYELOMA
     Route: 048
     Dates: start: 20091127, end: 20091210
  2. DEXAMETHASONE [Suspect]
     Indication: MULTIPLE MYELOMA
     Route: 065
     Dates: start: 20091127
  3. PREVISCAN [Concomitant]
     Indication: THROMBOSIS PROPHYLAXIS
     Route: 048
  4. OMEPRAZOLE [Concomitant]
     Indication: GASTRITIS PROPHYLAXIS
     Route: 048

REACTIONS (4)
  - LUNG DISORDER [None]
  - OEDEMA PERIPHERAL [None]
  - OESOPHAGITIS [None]
  - PANCYTOPENIA [None]
